FAERS Safety Report 6913263-5 (Version None)
Quarter: 2010Q3

REPORT INFORMATION
  Report Type: 
  Country: None (occurrence: None)
  Receive Date: 20100809
  Receipt Date: 20100730
  Transmission Date: 20110219
  Serious: Yes (Hospitalization)
  Sender: FDA-Public Use
  Company Number: US-BIOGENIDEC-2010BI026220

PATIENT
  Age: 62 Year
  Sex: Female

DRUGS (1)
  1. AVONEX [Suspect]
     Indication: MULTIPLE SCLEROSIS
     Route: 030
     Dates: start: 20000526

REACTIONS (5)
  - BONE GRAFT [None]
  - DENTAL IMPLANTATION [None]
  - PAIN [None]
  - TEMPERATURE INTOLERANCE [None]
  - TOOTH EXTRACTION [None]
